FAERS Safety Report 13109836 (Version 1)
Quarter: 2017Q1

REPORT INFORMATION
  Report Type: Spontaneous
  Country: US (occurrence: US)
  Receive Date: 20170112
  Receipt Date: 20170112
  Transmission Date: 20170428
  Serious: Yes (Hospitalization)
  Sender: FDA-Public Use
  Company Number: US-ROCHE-1100426

PATIENT
  Age: 42 Year
  Sex: Male
  Weight: 41.36 kg

DRUGS (4)
  1. ASPIRIN. [Concomitant]
     Active Substance: ASPIRIN
  2. ACTIVASE [Suspect]
     Active Substance: ALTEPLASE
     Indication: MYOCARDIAL INFARCTION
     Route: 065
     Dates: start: 19880820
  3. ECOTRIN [Concomitant]
     Active Substance: ASPIRIN
     Route: 065
  4. LOPRESSOR [Concomitant]
     Active Substance: METOPROLOL TARTRATE
     Route: 048

REACTIONS (4)
  - Cardiac ventricular disorder [Unknown]
  - Sinus tachycardia [Unknown]
  - Ventricular extrasystoles [Unknown]
  - Ventricular tachycardia [Unknown]
